FAERS Safety Report 8573548-6 (Version None)
Quarter: 2012Q3

REPORT INFORMATION
  Report Type: 
  Country: None (occurrence: None)
  Receive Date: 20120806
  Receipt Date: 20120802
  Transmission Date: 20120928
  Serious: Yes (Hospitalization, Disabling, Other)
  Sender: FDA-Public Use
  Company Number: US-009507513-0909USA00175

PATIENT

DRUGS (7)
  1. AMLODIPINE [Concomitant]
  2. MK-2933 [Concomitant]
  3. FOSAMAX [Suspect]
     Indication: OSTEOPOROSIS PROPHYLAXIS
     Dosage: 70 MG QW
     Route: 048
     Dates: end: 20090101
  4. PRINIVIL [Concomitant]
     Route: 048
  5. ASPIRIN [Concomitant]
  6. LIPITOR [Concomitant]
  7. ESTRADIOL [Concomitant]

REACTIONS (7)
  - HAEMATURIA [None]
  - FEMUR FRACTURE [None]
  - HAEMATOCRIT DECREASED [None]
  - SUPRAVENTRICULAR TACHYCARDIA [None]
  - BLOOD THYROID STIMULATING HORMONE INCREASED [None]
  - BURSITIS [None]
  - CONFUSION POSTOPERATIVE [None]
